FAERS Safety Report 7783151-3 (Version None)
Quarter: 2011Q3

REPORT INFORMATION
  Report Type: 
  Country: None (occurrence: None)
  Receive Date: 20110928
  Receipt Date: 20110926
  Transmission Date: 20111222
  Serious: Yes (Death, Hospitalization, Other)
  Sender: FDA-Public Use
  Company Number: PHHY2011CR84989

PATIENT
  Age: 79 Year
  Sex: Female

DRUGS (3)
  1. IRBESARTAN [Concomitant]
     Dosage: UNK
  2. DIOVAN [Suspect]
     Indication: HYPERTENSION
     Dosage: 160 MG
  3. HYDROCHLOROTHIAZIDE [Concomitant]
     Dosage: UNK

REACTIONS (4)
  - COUGH [None]
  - DEATH [None]
  - PULMONARY FIBROSIS [None]
  - PNEUMONIA [None]
